FAERS Safety Report 6239601-7 (Version None)
Quarter: 2009Q2

REPORT INFORMATION
  Report Type: 
  Country: None (occurrence: None)
  Receive Date: 20090619
  Receipt Date: 20090608
  Transmission Date: 20091009
  Serious: Yes (Other)
  Sender: FDA-Public Use
  Company Number: POMP-1000605

PATIENT
  Age: 71 Year
  Sex: Male

DRUGS (4)
  1. MYOZYME [Suspect]
     Indication: GLYCOGEN STORAGE DISEASE TYPE II
     Dosage: 20 MG/KG, Q2W, INTRAVENOUS
     Route: 042
     Dates: start: 20060501, end: 20090505
  2. MYOZYME [Suspect]
     Indication: GLYCOGEN STORAGE DISEASE TYPE II
     Dosage: 20 MG/KG, Q2W, INTRAVENOUS
     Route: 042
     Dates: start: 20060501
  3. MYOZYME [Suspect]
  4. FENISTIL (DIMETINDENE MALEATE) [Concomitant]

REACTIONS (3)
  - CHILLS [None]
  - HYPERTENSIVE CRISIS [None]
  - PYREXIA [None]
